FAERS Safety Report 5767478-2 (Version None)
Quarter: 2008Q2

REPORT INFORMATION
  Report Type: 
  Country: None (occurrence: None)
  Receive Date: 20080611
  Receipt Date: 20080611
  Transmission Date: 20081010
  Serious: Yes (Other)
  Sender: FDA-Public Use
  Company Number: None

PATIENT
  Age: 84 Year
  Sex: Female

DRUGS (1)
  1. DIGITEK 0.125MG BERTEK [Suspect]
     Dosage: 1 TABLET ORALLY ONCE DAILY
     Route: 048
     Dates: start: 20080423

REACTIONS (1)
  - NAUSEA [None]
